FAERS Safety Report 4700229-9 (Version None)
Quarter: 2005Q2

REPORT INFORMATION
  Report Type: 
  Country: None (occurrence: None)
  Receive Date: 20050624
  Receipt Date: 20050624
  Transmission Date: 20051028
  Serious: Yes (Other)
  Sender: FDA-Public Use
  Company Number: None

PATIENT
  Age: 42 Year
  Sex: Female
  Weight: 70.3075 kg

DRUGS (5)
  1. EFFEXOR XR [Suspect]
     Indication: ANXIETY
     Dosage: 37.5 MG     1 DAY    ORAL
     Route: 048
     Dates: start: 20031101, end: 20050623
  2. EFFEXOR XR [Suspect]
     Indication: DEPRESSION
     Dosage: 37.5 MG     1 DAY    ORAL
     Route: 048
     Dates: start: 20031101, end: 20050623
  3. SPIRONOLACTONE [Concomitant]
  4. SYNTHROID [Concomitant]
  5. CYTOMEL [Concomitant]

REACTIONS (6)
  - DRUG WITHDRAWAL SYNDROME [None]
  - INFLUENZA LIKE ILLNESS [None]
  - MIGRAINE [None]
  - NECK PAIN [None]
  - PAIN [None]
  - PYREXIA [None]
